FAERS Safety Report 4644116-3 (Version None)
Quarter: 2005Q2

REPORT INFORMATION
  Report Type: 
  Country: None (occurrence: None)
  Receive Date: 20050425
  Receipt Date: 20050412
  Transmission Date: 20051028
  Serious: Yes (Hospitalization)
  Sender: FDA-Public Use
  Company Number: US-GLAXOSMITHKLINE-A0553853A

PATIENT
  Age: 73 Year
  Sex: Male
  Weight: 93.6 kg

DRUGS (1)
  1. SALMETEROL [Suspect]
     Dosage: 50MCG TWICE PER DAY
     Route: 055
     Dates: start: 20020925

REACTIONS (11)
  - AZOTAEMIA [None]
  - BLOOD PRESSURE DECREASED [None]
  - CHEST PAIN [None]
  - COUGH [None]
  - HYPOVOLAEMIA [None]
  - LEUKOCYTOSIS [None]
  - LUNG INFILTRATION [None]
  - MYALGIA [None]
  - PLEURAL EFFUSION [None]
  - PNEUMONIA [None]
  - PYREXIA [None]
